FAERS Safety Report 5634891-3 (Version None)
Quarter: 2008Q1

REPORT INFORMATION
  Report Type: 
  Country: None (occurrence: None)
  Receive Date: 20080131
  Receipt Date: 20071109
  Transmission Date: 20080703
  Serious: No
  Sender: FDA-Public Use
  Company Number: PHEH2007US11236

PATIENT
  Sex: Male

DRUGS (1)
  1. TEKTURNA [Suspect]
     Indication: HYPERTENSION
     Dosage: 300 MG, ORAL : 150 MG, Q12H, ORAL
     Route: 048

REACTIONS (2)
  - DIARRHOEA [None]
  - HEART RATE IRREGULAR [None]
